FAERS Safety Report 15996325 (Version 8)
Quarter: 2020Q2

REPORT INFORMATION
  Report Type: Report from Study
  Country: US (occurrence: US)
  Receive Date: 20190222
  Receipt Date: 20200603
  Transmission Date: 20200713
  Serious: Yes (Hospitalization)
  Sender: FDA-Public Use
  Company Number: US-ACTELION-A-US2019-186654

PATIENT
  Age: 68 Year
  Sex: Female
  Weight: 118.82 kg

DRUGS (5)
  1. OPSUMIT [Suspect]
     Active Substance: MACITENTAN
     Indication: PULMONARY ARTERIAL HYPERTENSION
     Dosage: 10 MG, QD
     Route: 048
  2. ADCIRCA [Concomitant]
     Active Substance: TADALAFIL
  3. ELIQUIS [Concomitant]
     Active Substance: APIXABAN
  4. UPTRAVI [Suspect]
     Active Substance: SELEXIPAG
     Dosage: 1200 MCG, BID
     Route: 048
  5. UPTRAVI [Suspect]
     Active Substance: SELEXIPAG
     Indication: PULMONARY ARTERIAL HYPERTENSION
     Dosage: 1400 MCG, BID
     Route: 048

REACTIONS (15)
  - Shoulder arthroplasty [Unknown]
  - Rash [Unknown]
  - Pyrexia [Unknown]
  - Fluid retention [Unknown]
  - Arthritis [Not Recovered/Not Resolved]
  - Diarrhoea [Unknown]
  - Headache [Unknown]
  - Nausea [Unknown]
  - Dyspnoea [Recovering/Resolving]
  - Cardiac ablation [Unknown]
  - Pneumonia [Unknown]
  - Chills [Unknown]
  - Vomiting [Unknown]
  - Infection [Unknown]
  - Cardiac monitoring [Unknown]

NARRATIVE: CASE EVENT DATE: 20190222
